FAERS Safety Report 21739881 (Version 2)
Quarter: 2023Q1

REPORT INFORMATION
  Report Type: Spontaneous
  Country: NL (occurrence: NL)
  Receive Date: 20221216
  Receipt Date: 20230127
  Transmission Date: 20230418
  Serious: Yes (Death, Hospitalization, Other)
  Sender: FDA-Public Use
  Company Number: NL-AMGEN-NLDSP2022217072

PATIENT
  Age: 54 Year
  Sex: Female

DRUGS (11)
  1. PROLIA [Suspect]
     Active Substance: DENOSUMAB
     Indication: Systemic lupus erythematosus
     Dosage: UNK
     Route: 065
  2. PROLIA [Suspect]
     Active Substance: DENOSUMAB
     Indication: Antiphospholipid syndrome
  3. ACENOCOUMAROL [Concomitant]
     Active Substance: ACENOCOUMAROL
     Indication: Systemic lupus erythematosus
  4. ACENOCOUMAROL [Concomitant]
     Active Substance: ACENOCOUMAROL
     Indication: Antiphospholipid syndrome
  5. CYCLOPHOSPHAMIDE [Concomitant]
     Active Substance: CYCLOPHOSPHAMIDE
  6. RITUXIMAB [Concomitant]
     Active Substance: RITUXIMAB
  7. HEPARIN [Concomitant]
     Active Substance: HEPARIN SODIUM
  8. AZATHIOPRINE [Concomitant]
     Active Substance: AZATHIOPRINE
     Indication: Systemic lupus erythematosus
     Dosage: UNK
     Route: 065
  9. AZATHIOPRINE [Concomitant]
     Active Substance: AZATHIOPRINE
     Indication: Antiphospholipid syndrome
  10. PREDNISOLONE [Concomitant]
     Active Substance: PREDNISOLONE
     Indication: Systemic lupus erythematosus
     Dosage: UNK
     Route: 065
  11. PREDNISOLONE [Concomitant]
     Active Substance: PREDNISOLONE
     Indication: Antiphospholipid syndrome

REACTIONS (6)
  - Multiple organ dysfunction syndrome [Fatal]
  - Antiphospholipid syndrome [Fatal]
  - Lupus endocarditis [Fatal]
  - Systemic lupus erythematosus [Unknown]
  - Lupus encephalitis [Unknown]
  - Off label use [Unknown]
